FAERS Safety Report 8402859-X (Version None)
Quarter: 2012Q2

REPORT INFORMATION
  Report Type: 
  Country: None (occurrence: None)
  Receive Date: 20120323
  Receipt Date: 20111209
  Transmission Date: 20120825
  Serious: Yes (Hospitalization, Other)
  Sender: FDA-Public Use
  Company Number: 163-21880-11040955

PATIENT
  Age: 59 Year
  Sex: Female

DRUGS (6)
  1. ASPIRIN [Suspect]
     Indication: PRODUCT USED FOR UNKNOWN INDICATION
  2. ALLOPURINOL [Concomitant]
  3. PHENERGAN HCL [Concomitant]
  4. REVLIMID [Suspect]
     Indication: MULTIPLE MYELOMA
     Dosage: 25 MG, DAYS 1-21 EVERY 28 DAYS, PO
     Route: 048
     Dates: start: 20110203
  5. VELCADE [Suspect]
     Indication: MULTIPLE MYELOMA
  6. DEXAMETHASONE [Suspect]
     Indication: PREMEDICATION
     Dosage: 20 MG, IV
     Route: 042
     Dates: start: 20110201

REACTIONS (3)
  - RENAL FAILURE [None]
  - MULTI-ORGAN FAILURE [None]
  - TUMOUR LYSIS SYNDROME [None]
